FAERS Safety Report 16775847 (Version 2)
Quarter: 2019Q3

REPORT INFORMATION
  Report Type: Spontaneous
  Country: US (occurrence: US)
  Receive Date: 20190905
  Receipt Date: 20190919
  Transmission Date: 20191005
  Serious: No
  Sender: FDA-Public Use
  Company Number: US-PFIZER INC-2019378167

PATIENT
  Age: 68 Year
  Sex: Male
  Weight: 88.9 kg

DRUGS (4)
  1. VIAGRA [Suspect]
     Active Substance: SILDENAFIL CITRATE
     Indication: ERECTILE DYSFUNCTION
     Dosage: 100 MG, UNK
  2. COMBIVENT [Concomitant]
     Active Substance: ALBUTEROL SULFATE\IPRATROPIUM BROMIDE
     Indication: CHRONIC OBSTRUCTIVE PULMONARY DISEASE
     Dosage: 20 UG, 2X/DAY (20 MCG, INHALER, TWICE IN THE EVENING BEFORE SLEEP)
     Dates: start: 2010
  3. ADVAIR HFA [Concomitant]
     Active Substance: FLUTICASONE PROPIONATE\SALMETEROL XINAFOATE
     Indication: CHRONIC OBSTRUCTIVE PULMONARY DISEASE
     Dosage: UNK, 2X/DAY (250/50, INHALER, ONCE IN THE MORNING AND ONCE AT NIGHT BEFORE SLEEP)
     Dates: start: 2010
  4. VIAGRA [Suspect]
     Active Substance: SILDENAFIL CITRATE
     Dosage: 150 MG, DAILY(100 MG ONE AND HALF A DAY)
     Dates: start: 20190618

REACTIONS (1)
  - Therapeutic product effect prolonged [Recovered/Resolved]
